FAERS Safety Report 18385397 (Version 2)
Quarter: 2020Q4

REPORT INFORMATION
  Report Type: Spontaneous
  Country: US (occurrence: US)
  Receive Date: 20201015
  Receipt Date: 20201110
  Transmission Date: 20210114
  Serious: No
  Sender: FDA-Public Use
  Company Number: US-JNJFOC-20201011845

PATIENT
  Age: 73 Year
  Sex: Male
  Weight: 58.57 kg

DRUGS (4)
  1. METFORMIN [Concomitant]
     Active Substance: METFORMIN HYDROCHLORIDE
     Indication: DIABETES MELLITUS
     Route: 065
  2. INVOKANA [Concomitant]
     Active Substance: CANAGLIFLOZIN
     Indication: DIABETES MELLITUS
     Route: 065
  3. PEPCID COMPLETE [Suspect]
     Active Substance: CALCIUM CARBONATE\FAMOTIDINE\MAGNESIUM HYDROXIDE
     Indication: GASTROOESOPHAGEAL REFLUX DISEASE
     Dosage: 1 TABLET ONCE A DAY
     Route: 048
     Dates: start: 20201004, end: 20201007
  4. INSULIN 27 [Concomitant]
     Indication: DIABETES MELLITUS
     Route: 065

REACTIONS (1)
  - Hypoglycaemia [Recovered/Resolved]

NARRATIVE: CASE EVENT DATE: 20201004
